FAERS Safety Report 23626879 (Version 1)
Quarter: 2024Q1

REPORT INFORMATION
  Report Type: Spontaneous
  Country: FR (occurrence: FR)
  Receive Date: 20240313
  Receipt Date: 20240313
  Transmission Date: 20240410
  Serious: Yes (Death, Other)
  Sender: FDA-Public Use
  Company Number: None

PATIENT
  Age: 16 Year
  Sex: Female

DRUGS (4)
  1. BUSULFAN [Suspect]
     Active Substance: BUSULFAN
     Indication: Ewing^s sarcoma
     Dosage: UNK
  2. BUSULFAN [Suspect]
     Active Substance: BUSULFAN
     Indication: Off label use
  3. MELPHALAN [Suspect]
     Active Substance: MELPHALAN
     Indication: Ewing^s sarcoma
     Dosage: UNK
  4. NAVELBINE [Suspect]
     Active Substance: VINORELBINE TARTRATE
     Indication: Ewing^s sarcoma

REACTIONS (6)
  - Pulmonary toxicity [Fatal]
  - Death [Fatal]
  - Radiation pneumonitis [Unknown]
  - Off label use [Unknown]
  - Fibrosis [Unknown]
  - Off label use [Unknown]
